FAERS Safety Report 11324650 (Version 1)
Quarter: 2015Q3

REPORT INFORMATION
  Report Type: Spontaneous
  Country: US (occurrence: US)
  Receive Date: 20150730
  Receipt Date: 20150730
  Transmission Date: 20151125
  Serious: No
  Sender: FDA-Public Use
  Company Number: US-PFIZER INC-2015249971

PATIENT
  Sex: Female
  Weight: 53 kg

DRUGS (1)
  1. PREMARIN [Suspect]
     Active Substance: ESTROGENS, CONJUGATED
     Indication: HORMONE REPLACEMENT THERAPY
     Dosage: UNK, 1X/DAY, AT NIGHT
     Dates: start: 1990

REACTIONS (3)
  - Breast tenderness [Unknown]
  - Breast pain [Unknown]
  - Product use issue [Unknown]
